FAERS Safety Report 5773995-1 (Version None)
Quarter: 2008Q2

REPORT INFORMATION
  Report Type: 
  Country: None (occurrence: None)
  Receive Date: 20080616
  Receipt Date: 20080604
  Transmission Date: 20081010
  Serious: Yes (Hospitalization, Other)
  Sender: FDA-Public Use
  Company Number: JP-ROCHE-445432

PATIENT
  Sex: Female
  Weight: 41 kg

DRUGS (2)
  1. PEGASYS [Suspect]
     Route: 058
     Dates: start: 20050517
  2. PEGASYS [Suspect]
     Route: 058
     Dates: end: 20050802

REACTIONS (2)
  - HYPOPITUITARISM [None]
  - INTERSTITIAL LUNG DISEASE [None]
